FAERS Safety Report 12741449 (Version 3)
Quarter: 2016Q4

REPORT INFORMATION
  Report Type: Spontaneous
  Country: US (occurrence: US)
  Receive Date: 20160914
  Receipt Date: 20161227
  Transmission Date: 20170207
  Serious: No
  Sender: FDA-Public Use
  Company Number: US-PFIZER INC-2016430150

PATIENT
  Age: 68 Year
  Sex: Female

DRUGS (2)
  1. XELJANZ XR [Suspect]
     Active Substance: TOFACITINIB CITRATE
     Indication: RHEUMATOID ARTHRITIS
     Dosage: 22 MG, DAILY
     Dates: start: 20160825, end: 20160831
  2. HUMIRA [Suspect]
     Active Substance: ADALIMUMAB
     Indication: IMMUNISATION
     Dosage: 2 WEEKS APART FOR 7 INJECTIONS
     Dates: start: 20160519, end: 20160816

REACTIONS (5)
  - Upper respiratory tract infection [Recovered/Resolved]
  - Infected dermal cyst [Recovered/Resolved]
  - Rash [Recovered/Resolved]
  - Drug hypersensitivity [Recovered/Resolved]
  - Headache [Unknown]

NARRATIVE: CASE EVENT DATE: 20160902
